FAERS Safety Report 23659056 (Version 1)
Quarter: 2024Q1

REPORT INFORMATION
  Report Type: Spontaneous
  Country: US (occurrence: US)
  Receive Date: 20240321
  Receipt Date: 20240321
  Transmission Date: 20240410
  Serious: Yes (Other)
  Sender: FDA-Public Use
  Company Number: US-PFIZER INC-202400068302

PATIENT
  Age: 51 Year
  Sex: Female

DRUGS (1)
  1. XELJANZ XR [Suspect]
     Active Substance: TOFACITINIB CITRATE
     Indication: Rheumatoid arthritis
     Dosage: 11 MG 1 TABS(S) ONCE A DAY
     Route: 048

REACTIONS (5)
  - Knee arthroplasty [Unknown]
  - Arthralgia [Unknown]
  - Joint swelling [Unknown]
  - Joint warmth [Unknown]
  - Fall [Unknown]

NARRATIVE: CASE EVENT DATE: 20230601
